FAERS Safety Report 5131235-0 (Version None)
Quarter: 2006Q4

REPORT INFORMATION
  Report Type: 
  Country: None (occurrence: None)
  Receive Date: 20061017
  Receipt Date: 20061017
  Transmission Date: 20070319
  Serious: Yes (Hospitalization)
  Sender: FDA-Public Use
  Company Number: None

PATIENT
  Age: 86 Year
  Sex: Female

DRUGS (11)
  1. VENLAFAXINE HCL EXTENDED-RELEASE [Suspect]
     Indication: DEPRESSION
     Dosage: 225 MG QD PO
     Route: 048
     Dates: start: 20060413, end: 20060429
  2. ADVAIR DISKUS 250/50 [Concomitant]
  3. ARICEPT [Concomitant]
  4. ASPIRIN [Concomitant]
  5. GLUCOTROL [Concomitant]
  6. LASIX [Concomitant]
  7. IMDUR [Concomitant]
  8. METFORMIN HCL [Concomitant]
  9. NAPROSYN [Concomitant]
  10. K-DUR 10 [Concomitant]
  11. PREVACID [Concomitant]

REACTIONS (3)
  - ASTHENIA [None]
  - GAIT DISTURBANCE [None]
  - LETHARGY [None]
